FAERS Safety Report 10707117 (Version 1)
Quarter: 2015Q1

REPORT INFORMATION
  Report Type: Spontaneous
  Country: US (occurrence: None)
  Receive Date: 20150112
  Receipt Date: 20150112
  Transmission Date: 20150721
  Serious: Yes (Disabling)
  Sender: FDA-Public Use
  Company Number: None

PATIENT
  Age: 45 Year
  Sex: Female
  Weight: 86.18 kg

DRUGS (2)
  1. PREDNISONE 20MG [Suspect]
     Active Substance: PREDNISONE
     Indication: INFECTION
     Dosage: 6; ONCE DAILY
     Dates: start: 20130519, end: 20130525
  2. LEVAQUIN [Suspect]
     Active Substance: LEVOFLOXACIN
     Indication: SINUSITIS
     Dosage: 10 PILLS; ONCE DAILY
     Route: 048
     Dates: start: 20130510, end: 20130520

REACTIONS (2)
  - Tendon disorder [None]
  - Tendon rupture [None]

NARRATIVE: CASE EVENT DATE: 20131124
